FAERS Safety Report 19241579 (Version 3)
Quarter: 2021Q2

REPORT INFORMATION
  Report Type: Spontaneous
  Country: DE (occurrence: DE)
  Receive Date: 20210511
  Receipt Date: 20210604
  Transmission Date: 20210717
  Serious: Yes (Other)
  Sender: FDA-Public Use
  Company Number: DE-ASTELLAS-2021US016493

PATIENT
  Age: 69 Year
  Sex: Female

DRUGS (17)
  1. TORASEMID HEXAL [Concomitant]
     Active Substance: TORSEMIDE
     Indication: PRODUCT USED FOR UNKNOWN INDICATION
     Dosage: 2 DF, ONCE DAILY (MORNING) (PAUSED, TO BE CONTINUED AFTER THE KIDNEY VALUES ARE BETTER)
     Route: 065
  2. BISOPROLOL ACCORD [Concomitant]
     Active Substance: BISOPROLOL
     Indication: PRODUCT USED FOR UNKNOWN INDICATION
     Dosage: 1/2 IN MORNING AND 1 IN EVENING , TWICE DAILY
     Route: 065
  3. CALCIUM?SANDOZ FORTE [Concomitant]
     Active Substance: CALCIUM
     Indication: PRODUCT USED FOR UNKNOWN INDICATION
     Dosage: 500 MG, ONCE DAILY (NOON INTAKE BEFORE MEAL)
     Route: 065
  4. PROGRAF [Suspect]
     Active Substance: TACROLIMUS
     Indication: LUNG TRANSPLANT
     Dosage: 0.5 MG, TWICE DAILY
     Route: 048
     Dates: end: 20210428
  5. CELLCEPT [Concomitant]
     Active Substance: MYCOPHENOLATE MOFETIL\MYCOPHENOLATE MOFETIL HYDROCHLORIDE
     Indication: PRODUCT USED FOR UNKNOWN INDICATION
     Dosage: 500 MG, 2 X 2/DAY (PREPARE WITH GLOVES, TO BE TAKEN ON EMPTY STOMACH)
     Route: 065
  6. DECORTIN H [Concomitant]
     Active Substance: PREDNISOLONE
     Indication: PRODUCT USED FOR UNKNOWN INDICATION
     Dosage: 12.5 MG, ONCE DAILY (MORNING)
     Route: 065
  7. DEKRISTOL [Concomitant]
     Active Substance: CHOLECALCIFEROL
     Indication: PRODUCT USED FOR UNKNOWN INDICATION
     Dosage: 2000 IE, ONCE DAILY (MORNING TUESDAY)
     Route: 065
  8. MAGNESIUM DIASPORAL [Concomitant]
     Active Substance: MAGNESIUM
     Indication: PRODUCT USED FOR UNKNOWN INDICATION
     Dosage: 300 MG, THRICE DAILY (MORNING, NOON AND EVENING)
     Route: 065
  9. PRAVASTATIN. [Concomitant]
     Active Substance: PRAVASTATIN
     Indication: PRODUCT USED FOR UNKNOWN INDICATION
     Dosage: 20 MG, ONCE DAILY (EVENING)
     Route: 065
  10. SEMPERA [Concomitant]
     Active Substance: ITRACONAZOLE
     Indication: PRODUCT USED FOR UNKNOWN INDICATION
     Dosage: 100 MG, TWICE DAILY (1 IN MORNING AND 1 IN EVENING)
     Route: 065
  11. FOLSAN [Concomitant]
     Active Substance: FOLIC ACID
     Indication: PRODUCT USED FOR UNKNOWN INDICATION
     Dosage: 5 MG, (MONDAY AND THURSDAY)
     Route: 065
  12. THYRONAJOD [Concomitant]
     Active Substance: LEVOTHYROXINE SODIUM\POTASSIUM IODIDE
     Indication: PRODUCT USED FOR UNKNOWN INDICATION
     Dosage: 125 ?G, ONCE DAILY (MORNING (INTAKE BEFORE MEAL)
     Route: 065
  13. VALGANCICLOVIR RATIOPHARM [Concomitant]
     Indication: PRODUCT USED FOR UNKNOWN INDICATION
     Dosage: 450 MG, ONCE DAILY (MORNING) (EVERY SECOND DAY GFR 40?59; INTAKE WITH MEALS, EVERY SECOND DAY)
     Route: 065
  14. PROGRAF [Suspect]
     Active Substance: TACROLIMUS
     Indication: LUNG TRANSPLANT
     Dosage: 5 DF, TWICE DAILY [5 X 0.1 MG AT 10:00 A.M (MORNING) AND 5 X 0.1 MG AT 10:00 P.M. (EVENING)]
     Route: 048
     Dates: start: 20210428
  15. COTRIM FORTE [Concomitant]
     Active Substance: SULFAMETHOXAZOLE\TRIMETHOPRIM
     Indication: PRODUCT USED FOR UNKNOWN INDICATION
     Dosage: 960 MG, MORNING (MONDAY AND TUESDAY INTAKE WITH MEAL)
     Route: 065
  16. INNOHEP [Concomitant]
     Active Substance: TINZAPARIN SODIUM
     Indication: PRODUCT USED FOR UNKNOWN INDICATION
     Dosage: UNK UNK, ONCE DAILY (MORNING)
     Route: 065
  17. PANTOPRAZOL HEXAL [Concomitant]
     Active Substance: PANTOPRAZOLE
     Indication: PRODUCT USED FOR UNKNOWN INDICATION
     Dosage: 20 MG, ONCE DAILY (MORNING INTAKE BEFORE MEALS)
     Route: 065

REACTIONS (8)
  - Immunosuppressant drug level increased [Recovered/Resolved]
  - Product use in unapproved indication [Unknown]
  - Product availability issue [Unknown]
  - Off label use [Unknown]
  - Tremor [Recovered/Resolved]
  - Headache [Recovered/Resolved]
  - Medication error [Unknown]
  - Acute kidney injury [Recovered/Resolved]

NARRATIVE: CASE EVENT DATE: 20210428
